FAERS Safety Report 12689770 (Version 1)
Quarter: 2016Q3

REPORT INFORMATION
  Report Type: Spontaneous
  Country: US (occurrence: None)
  Receive Date: 20160825
  Receipt Date: 20160825
  Transmission Date: 20161109
  Serious: Yes (Other)
  Sender: FDA-Public Use
  Company Number: None

PATIENT

DRUGS (1)
  1. HYDROMORPHONE, 10MG PER 50ML PHARMEDIUM [Suspect]
     Active Substance: HYDROMORPHONE

REACTIONS (2)
  - Product tampering [None]
  - Product measured potency issue [None]

NARRATIVE: CASE EVENT DATE: 20160630
